FAERS Safety Report 16581600 (Version 3)
Quarter: 2020Q3

REPORT INFORMATION
  Report Type: Spontaneous
  Country: IT (occurrence: IT)
  Receive Date: 20190716
  Receipt Date: 20200910
  Transmission Date: 20201102
  Serious: Yes (Life-Threatening)
  Sender: FDA-Public Use
  Company Number: IT-NOVOPROD-671843

PATIENT
  Age: 13 Year
  Sex: Female

DRUGS (2)
  1. LANTUS [Suspect]
     Active Substance: INSULIN GLARGINE
     Indication: TYPE 1 DIABETES MELLITUS
     Dosage: 29 IU, QD
     Route: 058
     Dates: start: 20131108, end: 20181221
  2. NOVORAPID [Suspect]
     Active Substance: INSULIN ASPART
     Indication: TYPE 1 DIABETES MELLITUS
     Dosage: 67 IU, QD
     Route: 058
     Dates: start: 20131108, end: 20181221

REACTIONS (5)
  - Asthenia [Recovered/Resolved]
  - Ketoacidosis [Recovered/Resolved]
  - Vomiting [Recovered/Resolved]
  - Sopor [Recovered/Resolved]
  - Dehydration [Recovered/Resolved]

NARRATIVE: CASE EVENT DATE: 20181221
